FAERS Safety Report 22751508 (Version 3)
Quarter: 2024Q4

REPORT INFORMATION
  Report Type: Report from Study
  Country: US (occurrence: US)
  Receive Date: 20230726
  Receipt Date: 20241014
  Transmission Date: 20250115
  Serious: No
  Sender: NOVARTIS
  Company Number: US-002147023-NVSC2023US164147

PATIENT
  Sex: Male
  Weight: 113.4 kg

DRUGS (1)
  1. ENTRESTO [Suspect]
     Active Substance: SACUBITRIL\VALSARTAN
     Indication: Cardiac failure congestive
     Dosage: 1 DOSAGE FORM (24.26 MG), BID
     Route: 048
     Dates: start: 2021

REACTIONS (2)
  - Cough [Not Recovered/Not Resolved]
  - Blood pressure abnormal [Unknown]
